FAERS Safety Report 5600014-X (Version None)
Quarter: 2007Q4

REPORT INFORMATION
  Report Type: 
  Country: None (occurrence: None)
  Receive Date: 20071226
  Receipt Date: 20070912
  Transmission Date: 20080405
  Serious: Yes (Other)
  Sender: FDA-Public Use
  Company Number: 245626

PATIENT
  Age: 30 Year
  Sex: Female
  Weight: 52.2 kg

DRUGS (1)
  1. RAPTIVA [Suspect]
     Indication: PSORIASIS
     Dosage: 0.5 ML, SUBCUTANEOUS
     Route: 058
     Dates: start: 20070730

REACTIONS (5)
  - ANXIETY [None]
  - INFLUENZA [None]
  - MIGRAINE [None]
  - NAUSEA [None]
  - VOMITING [None]
